FAERS Safety Report 23365272 (Version 2)
Quarter: 2024Q1

REPORT INFORMATION
  Report Type: Report from Study
  Country: KR (occurrence: KR)
  Receive Date: 20240104
  Receipt Date: 20240117
  Transmission Date: 20240409
  Serious: Yes (Death, Hospitalization, Other)
  Sender: FDA-Public Use
  Company Number: KR-ABBVIE-5528915

PATIENT
  Age: 77 Year
  Sex: Male
  Weight: 74 kg

DRUGS (21)
  1. VENCLEXTA [Suspect]
     Active Substance: VENETOCLAX
     Indication: Acute myeloid leukaemia
     Route: 048
     Dates: start: 20231214, end: 20231219
  2. VENCLEXTA [Suspect]
     Active Substance: VENETOCLAX
     Indication: Acute myeloid leukaemia
     Route: 048
     Dates: start: 20230715, end: 20230721
  3. VENCLEXTA [Suspect]
     Active Substance: VENETOCLAX
     Indication: Acute myeloid leukaemia
     Route: 048
     Dates: start: 20230610, end: 20230621
  4. VENCLEXTA [Suspect]
     Active Substance: VENETOCLAX
     Indication: Acute myeloid leukaemia
     Route: 048
     Dates: start: 20231110, end: 20231119
  5. VENCLEXTA [Suspect]
     Active Substance: VENETOCLAX
     Indication: Acute myeloid leukaemia
     Route: 048
     Dates: start: 20230608, end: 20230608
  6. VENCLEXTA [Suspect]
     Active Substance: VENETOCLAX
     Indication: Acute myeloid leukaemia
     Route: 048
     Dates: start: 20230609, end: 20230609
  7. VENCLEXTA [Suspect]
     Active Substance: VENETOCLAX
     Indication: Acute myeloid leukaemia
     Route: 048
     Dates: start: 20230911, end: 20230920
  8. VIZADAKIN [Concomitant]
     Indication: Acute myeloid leukaemia
     Dates: start: 20230911, end: 20230919
  9. VIZADAKIN [Concomitant]
     Indication: Acute myeloid leukaemia
     Dates: start: 20230715, end: 20230721
  10. VIZADAKIN [Concomitant]
     Indication: Acute myeloid leukaemia
     Dates: start: 20231110, end: 20231116
  11. VIZADAKIN [Concomitant]
     Indication: Acute myeloid leukaemia
     Dates: start: 20230608, end: 20230614
  12. ALLOPURINOL [Concomitant]
     Active Substance: ALLOPURINOL
     Indication: Prophylaxis
     Dosage: TIME INTERVAL: 0.33333333 DAYS: FORM STRENGTH: 100 MG
     Route: 048
     Dates: start: 20230715, end: 20230721
  13. DISOLRIN [Concomitant]
     Indication: Gout
     Dosage: FORM STRENGTH: 40 MG
     Dates: start: 20230719, end: 20230721
  14. PREDNISOLONE [Concomitant]
     Active Substance: PREDNISOLONE
     Indication: Gout
     Dates: start: 20230730, end: 20230806
  15. PREDNISOLONE [Concomitant]
     Active Substance: PREDNISOLONE
     Indication: Gout
     Dates: start: 20230722, end: 20230729
  16. ASPIRIN [Concomitant]
     Active Substance: ASPIRIN
     Indication: Atrial fibrillation
     Dosage: ASPIRIN HANMI, FORM STRENGTH: 100 MG
     Dates: start: 2021
  17. TAICONIN [Concomitant]
     Indication: Adverse event
     Dosage: FORM STRENGTH: 400 MG
     Dates: start: 20231205
  18. CONBLOC [Concomitant]
     Indication: Atrial fibrillation
     Dosage: FORM STRENGTH: 2.5 MG
     Dates: start: 2021
  19. FEBUXOSTAT [Concomitant]
     Active Substance: FEBUXOSTAT
     Indication: Gout
     Dosage: FORM STRENGTH: 40 MG
     Dates: start: 20230719
  20. VIDAZA [Concomitant]
     Active Substance: AZACITIDINE
     Indication: Acute myeloid leukaemia
     Dosage: FORM STRENGTH: 100 MILLIGRAM
     Dates: start: 20231214, end: 20231219
  21. COLCHICINE [Concomitant]
     Active Substance: COLCHICINE
     Indication: Gout
     Dates: start: 20230721

REACTIONS (2)
  - Acute myeloid leukaemia [Fatal]
  - Febrile neutropenia [Recovered/Resolved]

NARRATIVE: CASE EVENT DATE: 20231204
